FAERS Safety Report 15852661 (Version 3)
Quarter: 2020Q4

REPORT INFORMATION
  Report Type: Spontaneous
  Country: BS (occurrence: BS)
  Receive Date: 20190122
  Receipt Date: 20201214
  Transmission Date: 20210113
  Serious: Yes (Other)
  Sender: FDA-Public Use
  Company Number: PHHY2019BS011394

PATIENT
  Sex: Female

DRUGS (9)
  1. IBUPROFEN. [Concomitant]
     Active Substance: IBUPROFEN
     Indication: PRODUCT USED FOR UNKNOWN INDICATION
     Dosage: 600 MG, BID
     Route: 048
     Dates: start: 20171114
  2. TRAMADOL. [Concomitant]
     Active Substance: TRAMADOL
     Indication: PAIN
     Dosage: 50 MG, Q6H
     Route: 048
     Dates: start: 20190716
  3. TASIGNA [Suspect]
     Active Substance: NILOTINIB
     Dosage: 200 MG, Q12H
     Route: 048
     Dates: start: 20180424
  4. HYDREA [Concomitant]
     Active Substance: HYDROXYUREA
     Indication: PRODUCT USED FOR UNKNOWN INDICATION
     Route: 065
  5. KEFLEX [Concomitant]
     Active Substance: CEPHALEXIN
     Indication: PRODUCT USED FOR UNKNOWN INDICATION
     Dosage: 500 MG, TID
     Route: 048
     Dates: start: 20161011
  6. ASPIRIN. [Concomitant]
     Active Substance: ASPIRIN
     Indication: PRODUCT USED FOR UNKNOWN INDICATION
     Dosage: 325 MG, QD
     Route: 065
  7. TASIGNA [Suspect]
     Active Substance: NILOTINIB
     Indication: CHRONIC MYELOID LEUKAEMIA
     Dosage: 6 DF (200 MG), QD
     Route: 065
  8. TASIGNA [Suspect]
     Active Substance: NILOTINIB
     Dosage: 400 MG, BID (2 IN THE MORNING AND 2 IN THE AFTERNOON)
     Route: 065
  9. ROBAXIN [Concomitant]
     Active Substance: METHOCARBAMOL
     Indication: PRODUCT USED FOR UNKNOWN INDICATION
     Dosage: 500 MG, TID
     Route: 048
     Dates: start: 20170124

REACTIONS (12)
  - Vomiting [Unknown]
  - Abdominal pain [Recovered/Resolved]
  - Oedema peripheral [Recovering/Resolving]
  - White blood cell count increased [Unknown]
  - Thrombocytosis [Unknown]
  - Eosinophil count decreased [Unknown]
  - Weight decreased [Unknown]
  - Haematocrit decreased [Unknown]
  - Haemoglobin increased [Unknown]
  - Neutrophil count increased [Unknown]
  - Incorrect dose administered [Unknown]
  - Red blood cell count decreased [Unknown]
